FAERS Safety Report 17019402 (Version 1)
Quarter: 2019Q4

REPORT INFORMATION
  Report Type: Report from Study
  Country: US (occurrence: US)
  Receive Date: 20191112
  Receipt Date: 20191112
  Transmission Date: 20200122
  Serious: Yes (Death)
  Sender: FDA-Public Use
  Company Number: US-ASTRAZENECA-2019SF59919

PATIENT
  Age: 20360 Day
  Sex: Male

DRUGS (12)
  1. ONDANSETRON [Concomitant]
     Active Substance: ONDANSETRON
  2. TENOFOVIR [Concomitant]
     Active Substance: TENOFOVIR
  3. VITAMIN D [Concomitant]
     Active Substance: VITAMIN D NOS
  4. MULTIVITAMIN [Concomitant]
     Active Substance: VITAMINS
  5. DESIPRAMINE [Concomitant]
     Active Substance: DESIPRAMINE
  6. LEVETIRACETAM. [Concomitant]
     Active Substance: LEVETIRACETAM
  7. DEXAMETHASONE. [Concomitant]
     Active Substance: DEXAMETHASONE
  8. OMEPRAZOLE. [Concomitant]
     Active Substance: OMEPRAZOLE
  9. TAGRISSO [Suspect]
     Active Substance: OSIMERTINIB
     Indication: METASTASES TO CENTRAL NERVOUS SYSTEM
     Route: 048
  10. TEMOZOLOMIDE. [Concomitant]
     Active Substance: TEMOZOLOMIDE
  11. VITAMIN B COMPLEX [Concomitant]
     Active Substance: CYANOCOBALAMIN\DEXPANTHENOL\NIACINAMIDE\PYRIDOXINE HYDROCHLORIDE\RIBOFLAVIN 5^-PHOSPHATE SODIUM\THIAMINE HYDROCHLORIDE\VITAMIN B COMPLEX
  12. VITAMIN C [Concomitant]
     Active Substance: ASCORBIC ACID

REACTIONS (1)
  - Death [Fatal]

NARRATIVE: CASE EVENT DATE: 20191024
